FAERS Safety Report 9085206 (Version 1)
Quarter: 2013Q1

REPORT INFORMATION
  Report Type: Spontaneous
  Country: CA (occurrence: CA)
  Receive Date: 20130218
  Receipt Date: 20130218
  Transmission Date: 20140127
  Serious: Yes (Other)
  Sender: FDA-Public Use
  Company Number: PHHY2008CA08987

PATIENT
  Sex: Female

DRUGS (6)
  1. GLEEVEC [Suspect]
     Dosage: 400MG
     Route: 048
     Dates: start: 2001
  2. GLEEVEC [Suspect]
     Dosage: 400 MG, BID
     Route: 048
     Dates: start: 200503
  3. DASATINIB [Suspect]
     Dosage: 70 MG, BID
     Dates: start: 200504, end: 200610
  4. DASATINIB [Suspect]
     Dosage: 800MG
     Dates: start: 200610, end: 20061113
  5. DASATINIB [Suspect]
     Dosage: 40MG EVERY OTHER DAY
     Dates: start: 20061120, end: 20061211
  6. DASATINIB [Suspect]
     Dosage: 40MG EVERY 2 DAYS
     Dates: start: 20061211

REACTIONS (14)
  - Cerebral haemorrhage [Recovered/Resolved with Sequelae]
  - Cerebrovascular accident [Recovered/Resolved with Sequelae]
  - Nervous system disorder [Recovered/Resolved with Sequelae]
  - Muscular weakness [Recovered/Resolved with Sequelae]
  - Thrombocytosis [Unknown]
  - Platelet count increased [Unknown]
  - Polyneuropathy [Unknown]
  - Gait disturbance [Unknown]
  - Headache [Unknown]
  - Chest pain [Unknown]
  - Dyspnoea [Unknown]
  - Asthenia [Unknown]
  - Therapeutic response decreased [Unknown]
  - White blood cell count increased [Unknown]
